FAERS Safety Report 12560836 (Version 1)
Quarter: 2016Q3

REPORT INFORMATION
  Report Type: Spontaneous
  Country: US (occurrence: None)
  Receive Date: 20160714
  Receipt Date: 20160714
  Transmission Date: 20161109
  Serious: No
  Sender: FDA-Public Use
  Company Number: None

PATIENT
  Age: 8 Year
  Sex: Male

DRUGS (1)
  1. OTREXUP [Suspect]
     Active Substance: METHOTREXATE
     Indication: UVEITIS
     Route: 058
     Dates: start: 20160520

REACTIONS (4)
  - Bone pain [None]
  - Pyrexia [None]
  - Alopecia [None]
  - Vision blurred [None]
